FAERS Safety Report 12826096 (Version 1)
Quarter: 2016Q4

REPORT INFORMATION
  Report Type: Spontaneous
  Country: US (occurrence: US)
  Receive Date: 20161007
  Receipt Date: 20161007
  Transmission Date: 20170207
  Serious: No
  Sender: FDA-Public Use
  Company Number: US-INDIVIOR LIMITED-INDV-083144-2015

PATIENT
  Sex: Female

DRUGS (1)
  1. SUBOXONE [Suspect]
     Active Substance: BUPRENORPHINE HYDROCHLORIDE\NALOXONE HYDROCHLORIDE
     Indication: DRUG DEPENDENCE
     Dosage: VARIOUS TAPERED DOSES, SELF TAPERED DOWN TO LESS THAN A 1 MG DOSE DAILY, ABOUT 4 MONTHS
     Route: 060
     Dates: start: 201505, end: 201508

REACTIONS (4)
  - Palpitations [Not Recovered/Not Resolved]
  - Intentional underdose [Recovered/Resolved]
  - Photosensitivity reaction [Not Recovered/Not Resolved]
  - Product preparation error [Recovered/Resolved]

NARRATIVE: CASE EVENT DATE: 2015
